FAERS Safety Report 6810240-X (Version None)
Quarter: 2010Q2

REPORT INFORMATION
  Report Type: 
  Country: None (occurrence: None)
  Receive Date: 20100630
  Receipt Date: 20100617
  Transmission Date: 20101027
  Serious: Yes (Hospitalization)
  Sender: FDA-Public Use
  Company Number: US-MYLANLABS-2010S1010778

PATIENT
  Age: 89 Year
  Sex: Male

DRUGS (6)
  1. AZITHROMYCIN [Suspect]
     Indication: PNEUMONIA
     Route: 065
  2. AZITHROMYCIN [Suspect]
     Indication: ESCHERICHIA BACTERAEMIA
     Route: 065
  3. PIPERACILLIN W/TAZOBACTAM          /01606301/ [Suspect]
     Indication: PNEUMONIA
     Route: 065
  4. PIPERACILLIN W/TAZOBACTAM          /01606301/ [Suspect]
     Indication: ESCHERICHIA BACTERAEMIA
     Route: 065
  5. VANCOMYCIN [Suspect]
     Indication: LEUKOCYTOSIS
     Route: 065
  6. METRONIDAZOLE [Suspect]
     Indication: LEUKOCYTOSIS
     Route: 065

REACTIONS (2)
  - ACUTE GENERALISED EXANTHEMATOUS PUSTULOSIS [None]
  - OEDEMA PERIPHERAL [None]
